FAERS Safety Report 5232316-3 (Version None)
Quarter: 2007Q1

REPORT INFORMATION
  Report Type: 
  Country: None (occurrence: None)
  Receive Date: 20070207
  Receipt Date: 20070131
  Transmission Date: 20070707
  Serious: Yes (Other)
  Sender: FDA-Public Use
  Company Number: IN-AVENTIS-200710475EU

PATIENT
  Age: 40 Year
  Sex: Female

DRUGS (29)
  1. ENOXAPARIN SODIUM [Suspect]
     Route: 058
     Dates: start: 20070112, end: 20070114
  2. VOLTAREN [Concomitant]
     Dates: start: 20070106, end: 20070112
  3. ZOSTRUM                            /00201801/ [Concomitant]
     Indication: ANTIBIOTIC PROPHYLAXIS
     Dates: start: 20070112, end: 20070112
  4. ZOSTRUM                            /00201801/ [Concomitant]
     Dates: start: 20070114
  5. ZOSTRUM                            /00201801/ [Concomitant]
     Dates: start: 20070113, end: 20070113
  6. AMIKACIN [Concomitant]
     Indication: ANTIBIOTIC PROPHYLAXIS
     Dates: start: 20070113, end: 20070114
  7. AMIKACIN [Concomitant]
     Dates: start: 20070113, end: 20070113
  8. TRAMADOL HCL [Concomitant]
     Dates: start: 20070113, end: 20070114
  9. TRAMADOL HCL [Concomitant]
     Dates: start: 20070115, end: 20070115
  10. MIDAZ [Concomitant]
     Indication: ANAESTHESIA
     Dates: start: 20070113, end: 20070113
  11. PENZYL [Concomitant]
     Indication: ANAESTHESIA
     Dates: start: 20070113, end: 20070113
  12. GLYCOPYRROLATE                     /00196201/ [Concomitant]
     Indication: PREMEDICATION
     Dates: start: 20070113, end: 20070113
  13. PROPOFOL [Concomitant]
     Indication: ANAESTHESIA
     Dates: start: 20070113, end: 20070113
  14. SCOLINE [Concomitant]
     Indication: ANAESTHESIA
     Dates: start: 20070113, end: 20070113
  15. RANTAC [Concomitant]
     Indication: PREMEDICATION
     Dates: start: 20070113, end: 20070113
  16. RANTAC [Concomitant]
     Dates: start: 20070115
  17. RANTAC [Concomitant]
     Dates: start: 20070113, end: 20070113
  18. RANTAC [Concomitant]
     Dates: start: 20070115
  19. PERISET [Concomitant]
     Indication: PREMEDICATION
     Dates: start: 20070113, end: 20070113
  20. HYDROCORTISONE [Concomitant]
     Dates: start: 20070113, end: 20070113
  21. HYDROCORTISONE [Concomitant]
     Dates: start: 20070117, end: 20070118
  22. AVIL [Concomitant]
     Dates: start: 20070113, end: 20070113
  23. NEOSTIGMINE [Concomitant]
     Indication: ANAESTHESIA
     Dates: start: 20070113, end: 20070113
  24. VECURONIUM BROMIDE [Concomitant]
     Indication: ANAESTHESIA
     Dates: start: 20070113, end: 20070113
  25. CIPROFLOXACIN HCL [Concomitant]
     Indication: ANTIBIOTIC PROPHYLAXIS
     Route: 042
     Dates: start: 20070116, end: 20070116
  26. DOPAMINE HCL [Concomitant]
     Indication: HYPOTENSION
     Dates: start: 20070117, end: 20070117
  27. POTASSIUM CHLORIDE [Concomitant]
     Dates: start: 20070118, end: 20070118
  28. LACTULOSE [Concomitant]
     Indication: CONSTIPATION
     Dates: start: 20070116, end: 20070116
  29. FRAGMIN [Concomitant]
     Dates: start: 20070117

REACTIONS (3)
  - HEPATIC ENZYME INCREASED [None]
  - HYPOTENSION [None]
  - RENAL FAILURE ACUTE [None]
